FAERS Safety Report 5278025-6 (Version None)
Quarter: 2007Q1

REPORT INFORMATION
  Report Type: 
  Country: None (occurrence: None)
  Receive Date: 20070321
  Receipt Date: 20070307
  Transmission Date: 20070707
  Serious: Yes (Death)
  Sender: FDA-Public Use
  Company Number: 2007JP000714

PATIENT
  Age: 72 Year
  Sex: Male
  Weight: 48 kg

DRUGS (6)
  1. FUNGUARD(MICAFUNGIN) INJECTION [Suspect]
     Dosage: 300 MG, , IV DRIP
     Route: 041
     Dates: start: 20070216, end: 20070216
  2. GASTER D (FAMOTIDINE) ORODISPERSABLE CR TABLET, 20MG [Suspect]
     Dosage: 20 MG, UID/QD, ORAL
     Route: 048
     Dates: start: 20030101, end: 20070116
  3. URSO (URSODEOXYCHOLIC ACID) FORMULATION UNKNOWN [Concomitant]
  4. DIHYDROCODEINE PHOSPHATE (DIHYDROCODEINE PHOSPHATE) FORMULATION UNKNOW [Concomitant]
  5. MARZULENE S (LEVOGLUTAMIDE, SODIUM GUALENATE) FORMULATION UNKNOWN [Concomitant]
  6. TOUGHMAC E (ENZYMES NOS) FORMULATION UNKNOWN [Concomitant]

REACTIONS (3)
  - CANDIDA PNEUMONIA [None]
  - IDIOPATHIC THROMBOCYTOPENIC PURPURA [None]
  - PLATELET COUNT DECREASED [None]
